FAERS Safety Report 21194455 (Version 3)
Quarter: 2023Q1

REPORT INFORMATION
  Report Type: Other
  Country: US (occurrence: None)
  Receive Date: 20220810
  Receipt Date: 20230208
  Transmission Date: 20230417
  Serious: Yes (Other)
  Sender: FDA-Public Use
  Company Number: US-ROCHE-2966898

PATIENT
  Age: 87 Year
  Sex: Female
  Weight: 107 kg

DRUGS (12)
  1. ACTEMRA [Suspect]
     Active Substance: TOCILIZUMAB
     Indication: Giant cell arteritis
     Dosage: INJECT 1 PEN(162MG) SUBCUTANEOUSLY EVERY WEEK
     Route: 058
     Dates: start: 2021
  2. ACTEMRA [Suspect]
     Active Substance: TOCILIZUMAB
  3. AMLODIPINE [Concomitant]
     Active Substance: AMLODIPINE BESYLATE
  4. ASPIRIN [Concomitant]
     Active Substance: ASPIRIN
  5. CLONIDINE [Concomitant]
     Active Substance: CLONIDINE
  6. COLACE [Concomitant]
     Active Substance: DOCUSATE SODIUM
  7. FIBER [Concomitant]
  8. IRON [Concomitant]
     Active Substance: IRON
  9. HYDROCHLOROTHIAZIDE [Concomitant]
     Active Substance: HYDROCHLOROTHIAZIDE
  10. LOVASTATIN [Concomitant]
     Active Substance: LOVASTATIN
  11. TRAZODONE [Concomitant]
     Active Substance: TRAZODONE HYDROCHLORIDE
  12. TYLENOL [Concomitant]
     Active Substance: ACETAMINOPHEN

REACTIONS (1)
  - Terminal state [Unknown]
